FAERS Safety Report 7299272-8 (Version None)
Quarter: 2011Q1

REPORT INFORMATION
  Report Type: 
  Country: None (occurrence: None)
  Receive Date: 20110217
  Receipt Date: 20110207
  Transmission Date: 20110831
  Serious: Yes (Other)
  Sender: FDA-Public Use
  Company Number: US-ELI_LILLY_AND_COMPANY-US201101002051

PATIENT
  Age: 65 Year
  Sex: Male

DRUGS (3)
  1. EFFIENT [Suspect]
     Dosage: 1 D/F, LOADING DOSE
  2. EFFIENT [Suspect]
     Dosage: 10 MG, UNKNOWN
  3. EFFIENT [Suspect]
     Dosage: 60 MG, LOADING DOSE

REACTIONS (4)
  - CHEST PAIN [None]
  - ISCHAEMIA [None]
  - OVERDOSE [None]
  - DRUG INEFFECTIVE [None]
